FAERS Safety Report 5690136-X (Version None)
Quarter: 2008Q2

REPORT INFORMATION
  Report Type: 
  Country: None (occurrence: None)
  Receive Date: 20080401
  Receipt Date: 20080321
  Transmission Date: 20081010
  Serious: Yes (Other)
  Sender: FDA-Public Use
  Company Number: PHHY2008JP03717

PATIENT
  Age: 69 Year
  Sex: Female

DRUGS (4)
  1. COMTAN [Suspect]
     Dosage: 100 MG, TID
     Route: 048
     Dates: start: 20070704
  2. LEVODOPA BENSERAZIDE HYDROCHLO [Concomitant]
     Dosage: 375 MG/DAY
     Route: 048
  3. SYMMETREL [Concomitant]
     Dosage: 450 MG/DAY
     Route: 048
     Dates: start: 20070510
  4. PERMAX [Concomitant]
     Dosage: 1250 UG/DAY
     Route: 048
     Dates: start: 20070510

REACTIONS (5)
  - ALANINE AMINOTRANSFERASE INCREASED [None]
  - ASPARTATE AMINOTRANSFERASE INCREASED [None]
  - BLOOD ALKALINE PHOSPHATASE DECREASED [None]
  - GAMMA-GLUTAMYLTRANSFERASE INCREASED [None]
  - HEPATIC FUNCTION ABNORMAL [None]
